FAERS Safety Report 24072855 (Version 3)
Quarter: 2024Q3

REPORT INFORMATION
  Report Type: Spontaneous
  Country: US (occurrence: US)
  Receive Date: 20240710
  Receipt Date: 20240920
  Transmission Date: 20241017
  Serious: No
  Sender: SANOFI AVENTIS
  Company Number: US-SA-SAC20240704000842

PATIENT
  Age: 21 Year
  Sex: Male

DRUGS (3)
  1. DUPIXENT [Suspect]
     Active Substance: DUPILUMAB
     Indication: Eczema
     Dosage: 600 DF, 1X
     Route: 058
     Dates: start: 20231011, end: 20231011
  2. DUPIXENT [Suspect]
     Active Substance: DUPILUMAB
     Dosage: 300 MG, Q15D
     Route: 058
     Dates: start: 2023
  3. DUPIXENT [Suspect]
     Active Substance: DUPILUMAB
     Dosage: 300 MG, QOW
     Route: 058
     Dates: start: 2023

REACTIONS (10)
  - Eczema [Unknown]
  - Pruritus [Unknown]
  - Erythema [Unknown]
  - Urticaria [Unknown]
  - Skin burning sensation [Unknown]
  - Burning sensation [Unknown]
  - Condition aggravated [Unknown]
  - Rash [Not Recovered/Not Resolved]
  - Product dose omission issue [Unknown]
  - Therapeutic response shortened [Unknown]

NARRATIVE: CASE EVENT DATE: 20240801
